FAERS Safety Report 6530482-0 (Version None)
Quarter: 2010Q1

REPORT INFORMATION
  Report Type: 
  Country: None (occurrence: None)
  Receive Date: 20100106
  Receipt Date: 20100106
  Transmission Date: 20100710
  Serious: Yes (Other)
  Sender: FDA-Public Use
  Company Number: None

PATIENT
  Age: 48 Year
  Sex: Female
  Weight: 67.1324 kg

DRUGS (2)
  1. ACYCLOVIR [Suspect]
     Indication: HERPES SIMPLEX
     Dosage: 400MG PO BID
     Route: 048
  2. ACYCLOVIR [Suspect]
     Indication: PROPHYLAXIS
     Dosage: 400MG PO BID
     Route: 048

REACTIONS (1)
  - DRUG INEFFECTIVE [None]
